FAERS Safety Report 7087007-3 (Version None)
Quarter: 2010Q4

REPORT INFORMATION
  Report Type: 
  Country: None (occurrence: None)
  Receive Date: 20101106
  Receipt Date: 20101022
  Transmission Date: 20110411
  Serious: No
  Sender: FDA-Public Use
  Company Number: US-WYE-H18327710

PATIENT
  Sex: Female
  Weight: 57.66 kg

DRUGS (9)
  1. PREMPRO [Suspect]
     Indication: OSTEOPENIA
     Route: 065
  2. PREMPRO [Suspect]
     Route: 065
     Dates: start: 20101001
  3. PREMPRO [Suspect]
     Route: 065
     Dates: start: 20101001
  4. FIORICET [Concomitant]
     Indication: MIGRAINE
     Dosage: UNKNOWN
     Route: 065
  5. MAGNESIUM [Concomitant]
     Indication: PRODUCT USED FOR UNKNOWN INDICATION
     Dosage: UNKNOWN
     Route: 065
  6. PHYTONADIONE [Concomitant]
     Indication: PRODUCT USED FOR UNKNOWN INDICATION
     Dosage: UNKNOWN
     Route: 065
  7. ALLEGRA [Suspect]
     Indication: PRODUCT USED FOR UNKNOWN INDICATION
     Dosage: 60/120 MG
     Route: 065
     Dates: start: 20040101
  8. CENTRUM [Concomitant]
     Indication: PRODUCT USED FOR UNKNOWN INDICATION
     Dosage: UNKNOWN
     Route: 065
  9. FISH OIL [Concomitant]
     Indication: PRODUCT USED FOR UNKNOWN INDICATION
     Dosage: UNKNOWN
     Route: 065

REACTIONS (7)
  - CARDIAC FLUTTER [None]
  - DRUG INEFFECTIVE [None]
  - HEART RATE IRREGULAR [None]
  - INSOMNIA [None]
  - NASOPHARYNGITIS [None]
  - OSTEOPOROSIS [None]
  - VITAMIN D DECREASED [None]
